FAERS Safety Report 5385111-9 (Version None)
Quarter: 2007Q3

REPORT INFORMATION
  Report Type: 
  Country: None (occurrence: None)
  Receive Date: 20070705
  Receipt Date: 20070705
  Transmission Date: 20080115
  Serious: Yes (Other)
  Sender: FDA-Public Use
  Company Number: None

PATIENT
  Age: 14 Year
  Sex: Female
  Weight: 58.9676 kg

DRUGS (2)
  1. TEGRETOL [Suspect]
     Indication: EPILEPSY
     Dosage: 1250 MG AM/1000 MG Q PM PO
     Route: 048
     Dates: start: 20040325
  2. TEGRETOL [Suspect]
     Indication: EPILEPSY
     Dosage: 1250 MG AM/1000 MG Q PM PO
     Route: 048
     Dates: start: 20070628

REACTIONS (3)
  - PETIT MAL EPILEPSY [None]
  - PHARMACEUTICAL PRODUCT COMPLAINT [None]
  - THERAPEUTIC RESPONSE UNEXPECTED WITH DRUG SUBSTITUTION [None]
